FAERS Safety Report 8343916-6 (Version None)
Quarter: 2012Q2

REPORT INFORMATION
  Report Type: 
  Country: None (occurrence: None)
  Receive Date: 20120508
  Receipt Date: 20120501
  Transmission Date: 20120825
  Serious: Yes (Hospitalization, Other)
  Sender: FDA-Public Use
  Company Number: US-BAYER-2010-001959

PATIENT
  Age: 29 Year
  Sex: Female
  Weight: 64.399 kg

DRUGS (4)
  1. CYMBALTA [Concomitant]
     Dosage: 30 MG, UNK
  2. YASMIN [Suspect]
     Indication: ACNE
     Dosage: UNK
     Dates: start: 20080301, end: 20090501
  3. CYCLOBENZAPRINE [Concomitant]
     Dosage: 5 MG, UNK
  4. LEXAPRO [Concomitant]
     Dosage: 10 MG, UNK

REACTIONS (5)
  - MYOCARDIAL INFARCTION [None]
  - CEREBROVASCULAR ACCIDENT [None]
  - PULMONARY EMBOLISM [None]
  - MIGRAINE [None]
  - THROMBOSIS [None]
